FAERS Safety Report 4626664-5 (Version None)
Quarter: 2005Q1

REPORT INFORMATION
  Report Type: 
  Country: None (occurrence: None)
  Receive Date: 20050330
  Receipt Date: 20050307
  Transmission Date: 20050727
  Serious: Yes (Hospitalization, Other)
  Sender: FDA-Public Use
  Company Number: 2005000508

PATIENT
  Sex: Female

DRUGS (11)
  1. TARCEVA [Suspect]
     Indication: NON-SMALL CELL LUNG CANCER
     Dosage: 100 MG (QD), ORAL
     Route: 048
     Dates: start: 20050216
  2. DILTIAZEM [Concomitant]
  3. COMPAZINE [Concomitant]
  4. POTASSIUM ACETATE [Concomitant]
  5. LEVOXYL [Concomitant]
  6. LIPITOR [Concomitant]
  7. PROTONIX [Concomitant]
  8. REMERON [Concomitant]
  9. SENOKOT (PARACETAMOL) [Concomitant]
  10. TYLENOL [Concomitant]
  11. ADVAIR DISKUS (SERETIDE MITE) [Concomitant]

REACTIONS (3)
  - CEREBROVASCULAR ACCIDENT [None]
  - SPEECH DISORDER [None]
  - VASCULAR OCCLUSION [None]
